FAERS Safety Report 8792109 (Version 1)
Quarter: 2012Q4

REPORT INFORMATION
  Report Type: 
  Country: FR (occurrence: FR)
  Receive Date: 20120918
  Receipt Date: 20120918
  Transmission Date: 20130627
  Serious: Yes (Hospitalization)
  Sender: FDA-Public Use
  Company Number: FR-EISAI INC-E2090-02306-SPO-FR

PATIENT
  Age: 76 Year
  Sex: Male

DRUGS (12)
  1. ZONEGRAN [Suspect]
     Indication: DRUG USE FOR UNKNOWN INDICATION
     Dosage: 100 mg daily
     Route: 048
     Dates: start: 20120813
  2. TEGRETOL [Suspect]
     Indication: DRUG USE FOR UNKNOWN INDICATION
     Dosage: Unknown
     Route: 048
     Dates: end: 20120722
  3. TEGRETOL [Suspect]
     Dosage: dose decreased to 200 mg daily
     Route: 048
     Dates: start: 20120723, end: 20120823
  4. LOVENOX [Suspect]
     Indication: DRUG USE FOR UNKNOWN INDICATION
     Dosage: Unknown
     Route: 030
     Dates: start: 20120802, end: 20120823
  5. VIMPAT [Concomitant]
     Indication: DRUG USE FOR UNKNOWN INDICATION
     Dosage: Unknown
     Route: 048
     Dates: end: 2012
  6. VIMPAT [Concomitant]
     Dosage: dose decreased to 200 mg daily
     Route: 048
     Dates: start: 2012
  7. KEPPRA [Concomitant]
     Dosage: 1000 mg daily
     Route: 048
     Dates: start: 20120723
  8. DOMPERIDONE [Concomitant]
  9. INEXIUM [Concomitant]
     Dosage: 40 mg daily
     Route: 048
  10. SPECIAFOLDINE [Concomitant]
     Dosage: 5 mg daily
     Route: 048
  11. URBANYL [Concomitant]
     Dosage: 20 mg daily
     Route: 048
  12. PREVISCAN [Concomitant]
     Dosage: 25 mg daily
     Route: 048

REACTIONS (1)
  - Neutropenia [Recovered/Resolved]
